FAERS Safety Report 10235037 (Version 2)
Quarter: 2016Q1

REPORT INFORMATION
  Report Type: Spontaneous
  Country: IT (occurrence: IT)
  Receive Date: 20140613
  Receipt Date: 20160122
  Transmission Date: 20160525
  Serious: Yes (Death, Other)
  Sender: FDA-Public Use
  Company Number: PHHY2014IT070018

PATIENT
  Age: 52 Year
  Sex: Male

DRUGS (5)
  1. SUNITINIB [Suspect]
     Active Substance: SUNITINIB
     Indication: GASTROINTESTINAL STROMAL TUMOUR
     Dosage: 50 MG, QD (4 WEEKS ON, 2 WEEKS OFF)
     Route: 065
  2. SUNITINIB [Suspect]
     Active Substance: SUNITINIB
     Dosage: 37.5 MG, QD
     Route: 065
  3. NILOTINIB [Suspect]
     Active Substance: NILOTINIB
     Indication: GASTROINTESTINAL STROMAL TUMOUR
     Dosage: 800 MG, QD
     Route: 065
  4. IMATINIB [Suspect]
     Active Substance: IMATINIB
     Dosage: 800 MG, QD
     Route: 065
     Dates: end: 201108
  5. IMATINIB [Suspect]
     Active Substance: IMATINIB
     Indication: GASTROINTESTINAL STROMAL TUMOUR
     Dosage: 400 MG, QD
     Route: 065

REACTIONS (11)
  - Malignant neoplasm progression [Unknown]
  - Anaemia [Unknown]
  - Gastrointestinal stromal tumour [Unknown]
  - General physical health deterioration [Unknown]
  - Abdominal mass [Unknown]
  - Drug intolerance [Unknown]
  - Death [Fatal]
  - Neoplasm recurrence [Unknown]
  - Drug resistance [Unknown]
  - Subileus [Unknown]
  - Neutropenia [Unknown]

NARRATIVE: CASE EVENT DATE: 201108
